FAERS Safety Report 4357616-0 (Version None)
Quarter: 2004Q2

REPORT INFORMATION
  Report Type: 
  Country: None (occurrence: None)
  Receive Date: 20040512
  Receipt Date: 20040512
  Transmission Date: 20050107
  Serious: Yes (Life-Threatening, Hospitalization)
  Sender: FDA-Public Use
  Company Number: None

PATIENT
  Age: 51 Year
  Sex: Male

DRUGS (1)
  1. HEPARIN [Suspect]
     Indication: THROMBOSIS
     Dosage: 12000 BID SQ
     Route: 058
     Dates: start: 20030303, end: 20040314

REACTIONS (1)
  - HEPARIN-INDUCED THROMBOCYTOPENIA [None]
